FAERS Safety Report 6814538-0 (Version None)
Quarter: 2010Q3

REPORT INFORMATION
  Report Type: 
  Country: None (occurrence: None)
  Receive Date: 20100702
  Receipt Date: 20100623
  Transmission Date: 20110219
  Serious: Yes (Hospitalization)
  Sender: FDA-Public Use
  Company Number: DE-NAPPMUNDI-DEU-2010-0006367

PATIENT
  Sex: Male
  Weight: 118 kg

DRUGS (6)
  1. HYDROMORPHONE HCL [Suspect]
     Indication: PAIN
     Dosage: 12 MG, DAILY
     Route: 048
     Dates: start: 20100609
  2. TORSEMIDE [Concomitant]
  3. RAMIPRIL [Concomitant]
  4. PANTOZOL                           /01263202/ [Concomitant]
  5. SPIRONOLACTONE [Concomitant]
  6. BISOPROLOL FUMARATE [Concomitant]

REACTIONS (2)
  - ABDOMINAL DISCOMFORT [None]
  - VOMITING [None]
